FAERS Safety Report 8090152-7 (Version None)
Quarter: 2012Q1

REPORT INFORMATION
  Report Type: 
  Country: None (occurrence: None)
  Receive Date: 20120129
  Receipt Date: 20111018
  Transmission Date: 20120608
  Serious: No
  Sender: FDA-Public Use
  Company Number: US-ABBOTT-11P-163-0866503-00

PATIENT
  Age: 61 Year
  Sex: Male

DRUGS (7)
  1. ASPIRIN [Concomitant]
     Indication: PROPHYLAXIS
     Route: 048
  2. VITAMIN D [Concomitant]
     Indication: VITAMIN SUPPLEMENTATION
     Route: 048
  3. VITAMIN B-12 [Concomitant]
     Indication: VITAMIN SUPPLEMENTATION
     Route: 048
  4. FISH OIL [Concomitant]
     Indication: ARTHROPATHY
  5. HUMIRA [Suspect]
     Indication: PSORIASIS
     Dates: start: 20090801
  6. LOVAZA [Concomitant]
     Indication: PRODUCT USED FOR UNKNOWN INDICATION
  7. GENERIC ALEVE [Concomitant]
     Indication: ARTHRALGIA
     Dosage: 1 PILL

REACTIONS (2)
  - PSORIASIS [None]
  - DRUG DOSE OMISSION [None]
